FAERS Safety Report 14559431 (Version 2)
Quarter: 2018Q1

REPORT INFORMATION
  Report Type: Spontaneous
  Country: PT (occurrence: PT)
  Receive Date: 20180221
  Receipt Date: 20180315
  Transmission Date: 20180509
  Serious: Yes (Hospitalization, Other)
  Sender: FDA-Public Use
  Company Number: PHHY2018PT026453

PATIENT
  Age: 44 Year
  Sex: Female

DRUGS (9)
  1. NIMESULIDE [Suspect]
     Active Substance: NIMESULIDE
     Indication: RESPIRATORY TRACT INFECTION
     Dosage: 100 MG, Q12H
     Route: 048
     Dates: start: 20170315, end: 201703
  2. AMOXICILLIN + CLAVULANATE POTASSIUM [Suspect]
     Active Substance: AMOXICILLIN\CLAVULANATE POTASSIUM
     Dosage: 1 DF, Q12H
     Route: 048
  3. TOPIRAMATE. [Concomitant]
     Active Substance: TOPIRAMATE
     Indication: EPILEPSY
     Dosage: 100 MG, QD
     Route: 048
  4. AMOXICILLIN + CLAVULANATE POTASSIUM [Suspect]
     Active Substance: AMOXICILLIN\CLAVULANATE POTASSIUM
     Indication: RESPIRATORY TRACT INFECTION
     Dosage: 1 DF, Q12H
     Route: 048
     Dates: start: 20170315, end: 201703
  5. NIMESULIDE [Suspect]
     Active Substance: NIMESULIDE
     Dosage: 100 MG, Q12H
     Route: 048
  6. PARACETAMOL [Concomitant]
     Active Substance: ACETAMINOPHEN
     Indication: PYREXIA
     Dosage: 1 DF, QD
     Route: 048
     Dates: start: 20170313, end: 20170314
  7. ETHINYLESTRADIOL [Concomitant]
     Active Substance: ETHINYL ESTRADIOL
     Indication: CONTRACEPTION
     Dosage: 1 DF, QD
     Route: 048
  8. METAMIZOLE MAGNESIUM [Concomitant]
     Active Substance: METAMIZOLE MAGNESIUM
     Indication: MYALGIA
     Dosage: 575 MG, QD
     Route: 048
     Dates: start: 20170312, end: 20170312
  9. ETHINYLESTRADIOL [Concomitant]
     Active Substance: ETHINYL ESTRADIOL
     Dosage: 1 DF, UNK
     Route: 048

REACTIONS (3)
  - Drug reaction with eosinophilia and systemic symptoms [Recovered/Resolved]
  - Pneumonitis [Recovered/Resolved]
  - Respiratory failure [Recovered/Resolved]

NARRATIVE: CASE EVENT DATE: 20170315
